FAERS Safety Report 9238787 (Version 1)
Quarter: 2013Q2

REPORT INFORMATION
  Report Type: Spontaneous
  Country: US (occurrence: None)
  Receive Date: 20130417
  Receipt Date: 20130417
  Transmission Date: 20140414
  Serious: No
  Sender: FDA-Public Use
  Company Number: None

PATIENT
  Age: 62 Year
  Sex: Female

DRUGS (2)
  1. SUTENT 25MG PFIZER [Suspect]
     Indication: NEOPLASM MALIGNANT
     Dosage: 25MG ONE DAILY ORAL
     Route: 048
     Dates: start: 20121107, end: 20130416
  2. SUTENT [Suspect]
     Indication: OVARIAN CANCER
     Dosage: 12.5MG  ONE DAILY ORAL
     Route: 048
     Dates: start: 20121107, end: 20130416

REACTIONS (4)
  - Mouth ulceration [None]
  - Diarrhoea [None]
  - Hypertensive crisis [None]
  - Syncope [None]
